FAERS Safety Report 11339585 (Version 4)
Quarter: 2015Q4

REPORT INFORMATION
  Report Type: Spontaneous
  Country: US (occurrence: US)
  Receive Date: 20150805
  Receipt Date: 20151218
  Transmission Date: 20160304
  Serious: Yes (Hospitalization, Other)
  Sender: FDA-Public Use
  Company Number: US-ROCHE-ITM201505IM015161

PATIENT
  Sex: Male
  Weight: 87.17 kg

DRUGS (2)
  1. ESBRIET [Suspect]
     Active Substance: PIRFENIDONE
     Indication: IDIOPATHIC PULMONARY FIBROSIS
     Dosage: 3 CAPSULES THRICE DAILY
     Route: 048
     Dates: start: 20150209
  2. KEFLEX [Concomitant]
     Active Substance: CEPHALEXIN

REACTIONS (8)
  - Neoplasm [Recovering/Resolving]
  - Furuncle [Recovering/Resolving]
  - Pneumonia [Unknown]
  - Gastrooesophageal reflux disease [Unknown]
  - Memory impairment [Unknown]
  - Decreased appetite [Unknown]
  - Drug ineffective [Unknown]
  - Cyst [Recovering/Resolving]
